FAERS Safety Report 12363547 (Version 1)
Quarter: 2016Q2

REPORT INFORMATION
  Report Type: Spontaneous
  Country: US (occurrence: None)
  Receive Date: 20160512
  Receipt Date: 20160512
  Transmission Date: 20160815
  Serious: No
  Sender: FDA-Public Use
  Company Number: None

PATIENT
  Age: 71 Year
  Sex: Female

DRUGS (1)
  1. GENGRAF [Suspect]
     Active Substance: CYCLOSPORINE
     Indication: LUNG TRANSPLANT
     Dosage: 50MG (0.5ML) TWICE A DAY BY MOUTH
     Route: 048
     Dates: start: 20160124

REACTIONS (5)
  - Retching [None]
  - Tremor [None]
  - Dysgeusia [None]
  - Increased bronchial secretion [None]
  - Balance disorder [None]

NARRATIVE: CASE EVENT DATE: 20160210
